FAERS Safety Report 5356914-1 (Version None)
Quarter: 2007Q2

REPORT INFORMATION
  Report Type: 
  Country: None (occurrence: None)
  Receive Date: 20070614
  Receipt Date: 20061103
  Transmission Date: 20071010
  Serious: No
  Sender: FDA-Public Use
  Company Number: US-ASTRAZENECA-2006UW21484

PATIENT
  Age: 53 Year
  Sex: Female

DRUGS (2)
  1. ATACAND HCT [Suspect]
     Dosage: 16/12.5, 2 TABLETS DAILY ACS (BEFORE SUPPER)
     Route: 048
  2. DILTIAZEM HCL [Suspect]

REACTIONS (5)
  - DIABETES MELLITUS [None]
  - FIBROMYALGIA [None]
  - OSTEOARTHRITIS [None]
  - PSORIATIC ARTHROPATHY [None]
  - WEIGHT LOSS POOR [None]
